FAERS Safety Report 19620595 (Version 1)
Quarter: 2021Q3

REPORT INFORMATION
  Report Type: Spontaneous
  Country: US (occurrence: US)
  Receive Date: 20210728
  Receipt Date: 20210728
  Transmission Date: 20211014
  Serious: No
  Sender: FDA-Public Use
  Company Number: US-APOTEX-2020AP024247

PATIENT

DRUGS (2)
  1. GLIPIZIDE. [Suspect]
     Active Substance: GLIPIZIDE
     Dosage: 10 MILLIGRAM, Q.H.S.
     Route: 065
  2. GLIPIZIDE. [Suspect]
     Active Substance: GLIPIZIDE
     Indication: BLOOD GLUCOSE INCREASED
     Dosage: 10 MILLIGRAM, Q.AM
     Route: 065

REACTIONS (3)
  - Blood glucose increased [Unknown]
  - Product quality issue [Unknown]
  - Drug ineffective [Unknown]
